FAERS Safety Report 9466439 (Version 1)
Quarter: 2013Q3

REPORT INFORMATION
  Report Type: Spontaneous
  Country: US (occurrence: None)
  Receive Date: 20130816
  Receipt Date: 20130816
  Transmission Date: 20140515
  Serious: No
  Sender: FDA-Public Use
  Company Number: None

PATIENT
  Age: 47 Year
  Sex: Male

DRUGS (2)
  1. DILANTIN [Suspect]
     Indication: EPILEPSY
     Dates: start: 1991, end: 1997
  2. PHENOBARBITAL [Suspect]
     Indication: EPILEPSY
     Dates: start: 1991, end: 1997

REACTIONS (3)
  - Sleep disorder [None]
  - Gingival disorder [None]
  - Rash [None]
